FAERS Safety Report 7712779-1 (Version None)
Quarter: 2011Q3

REPORT INFORMATION
  Report Type: 
  Country: None (occurrence: None)
  Receive Date: 20110826
  Receipt Date: 20110817
  Transmission Date: 20111222
  Serious: Yes (Hospitalization)
  Sender: FDA-Public Use
  Company Number: US-GLAXOSMITHKLINE-A0942225A

PATIENT
  Age: 53 Year
  Sex: Female

DRUGS (9)
  1. ZOLOFT [Suspect]
     Indication: DEPRESSION
     Route: 048
  2. HYDROCHLOROTHIAZIDE [Concomitant]
  3. TYLENOL-500 [Concomitant]
  4. PAXIL [Suspect]
     Indication: DEPRESSION
     Route: 048
     Dates: start: 20000101, end: 20000101
  5. EXCEDRIN (MIGRAINE) [Concomitant]
  6. LISINOPRIL [Concomitant]
  7. ACETYLSALICYLIC ACID [Concomitant]
  8. EFFEXOR XR [Suspect]
     Indication: DEPRESSION
     Route: 048
     Dates: end: 20110101
  9. BUSPAR [Suspect]
     Indication: DEPRESSION
     Route: 048

REACTIONS (7)
  - FEAR OF EATING [None]
  - TREMOR [None]
  - HYPERSENSITIVITY [None]
  - WEIGHT DECREASED [None]
  - PARANOIA [None]
  - ANXIETY [None]
  - DRUG INEFFECTIVE [None]
